FAERS Safety Report 19460612 (Version 3)
Quarter: 2021Q4

REPORT INFORMATION
  Report Type: Spontaneous
  Country: US (occurrence: US)
  Receive Date: 20210625
  Receipt Date: 20211028
  Transmission Date: 20220303
  Serious: Yes (Other)
  Sender: FDA-Public Use
  Company Number: US-JNJFOC-20210631994

PATIENT
  Age: 67 Year
  Sex: Female

DRUGS (10)
  1. ELMIRON [Suspect]
     Active Substance: PENTOSAN POLYSULFATE SODIUM
     Indication: Cystitis interstitial
     Dosage: 100 MG 2 PILLS A DAY, 3 PILLS A DAY AND 4 PILLS A DAY
     Route: 048
     Dates: start: 20100112, end: 20111031
  2. ELMIRON [Suspect]
     Active Substance: PENTOSAN POLYSULFATE SODIUM
     Dosage: 100 MG 2 PILLS A DAY AND 4 PILLS A DAY
     Route: 048
     Dates: start: 20130403, end: 20210309
  3. ATORVASTATIN [Concomitant]
     Active Substance: ATORVASTATIN
     Indication: Blood cholesterol
     Route: 065
     Dates: start: 2000
  4. METFORMIN [Concomitant]
     Active Substance: METFORMIN HYDROCHLORIDE
     Indication: Type 2 diabetes mellitus
     Route: 065
     Dates: start: 1955
  5. DEXILANT [Concomitant]
     Active Substance: DEXLANSOPRAZOLE
     Indication: Dyspepsia
     Route: 065
     Dates: start: 2018
  6. AMITRIPTYLINE [Concomitant]
     Active Substance: AMITRIPTYLINE
     Indication: Cystitis interstitial
     Route: 065
     Dates: start: 2010
  7. COLESTIPOL [Concomitant]
     Active Substance: COLESTIPOL
     Indication: Irritable bowel syndrome
     Route: 065
     Dates: start: 2018
  8. COLESTIPOL [Concomitant]
     Active Substance: COLESTIPOL
     Indication: Diarrhoea
  9. TRULICITY [Concomitant]
     Active Substance: DULAGLUTIDE
     Indication: Type 2 diabetes mellitus
     Route: 065
     Dates: start: 2019
  10. OCUVITE [Concomitant]
     Active Substance: VITAMINS
     Dates: start: 2021

REACTIONS (5)
  - Retinal dystrophy [Unknown]
  - Age-related macular degeneration [Not Recovered/Not Resolved]
  - Toxicity to various agents [Unknown]
  - Off label use [Unknown]
  - Product use issue [Unknown]

NARRATIVE: CASE EVENT DATE: 20130403
